FAERS Safety Report 5918100-3 (Version None)
Quarter: 2008Q4

REPORT INFORMATION
  Report Type: 
  Country: None (occurrence: None)
  Receive Date: 20081014
  Receipt Date: 20081006
  Transmission Date: 20090506
  Serious: Yes (Other)
  Sender: FDA-Public Use
  Company Number: JP-PFIZER INC-2008084396

PATIENT

DRUGS (1)
  1. HALCION [Suspect]
     Route: 048

REACTIONS (2)
  - HYPOPITUITARISM [None]
  - HYPOTHYROIDISM [None]
